FAERS Safety Report 7960473-4 (Version None)
Quarter: 2011Q4

REPORT INFORMATION
  Report Type: 
  Country: None (occurrence: None)
  Receive Date: 20111206
  Receipt Date: 20111118
  Transmission Date: 20120403
  Serious: Yes (Other)
  Sender: FDA-Public Use
  Company Number: PHHY2011IN96942

PATIENT
  Age: 40 Year
  Sex: Male

DRUGS (2)
  1. IBUPROFEN [Suspect]
     Dosage: 4 DF, UNK
  2. DICLOFENAC [Suspect]
     Dosage: 4 DF, DAILY

REACTIONS (4)
  - INCORRECT DOSE ADMINISTERED [None]
  - OBSTRUCTION GASTRIC [None]
  - DUODENAL STENOSIS [None]
  - VOMITING [None]
